FAERS Safety Report 8461302-5 (Version None)
Quarter: 2012Q2

REPORT INFORMATION
  Report Type: 
  Country: None (occurrence: None)
  Receive Date: 20120619
  Receipt Date: 20120619
  Transmission Date: 20120825
  Serious: No
  Sender: FDA-Public Use
  Company Number: None

PATIENT
  Age: 35 Year
  Sex: Female
  Weight: 132.9039 kg

DRUGS (7)
  1. METFORMIN HCL [Concomitant]
  2. NAPROXEN [Concomitant]
  3. DEPO-PROVERA [Concomitant]
  4. LISINOPRIL [Suspect]
     Indication: HYPERTENSION
     Dosage: 20 MG DAILY PO
     Route: 048
     Dates: start: 20090101, end: 20110727
  5. GLYBURIDE [Concomitant]
  6. HYDROCHLOROTHIAZIDE [Concomitant]
  7. LORATADINE [Concomitant]

REACTIONS (7)
  - PHARYNGEAL OEDEMA [None]
  - DYSPHAGIA [None]
  - HYPERSENSITIVITY [None]
  - PRURITUS [None]
  - ANGIOEDEMA [None]
  - LIP SWELLING [None]
  - DYSPHONIA [None]
